FAERS Safety Report 7272355-4 (Version None)
Quarter: 2011Q1

REPORT INFORMATION
  Report Type: 
  Country: None (occurrence: None)
  Receive Date: 20110203
  Receipt Date: 20110131
  Transmission Date: 20110831
  Serious: Yes (Death, Other)
  Sender: FDA-Public Use
  Company Number: PHHY2010IN87319

PATIENT
  Sex: Male

DRUGS (1)
  1. SEBIVO [Suspect]
     Indication: HEPATITIS B
     Dosage: SINCE LAST FOUR MONTHS

REACTIONS (4)
  - VIRAL LOAD INCREASED [None]
  - HEPATITIS B SURFACE ANTIGEN POSITIVE [None]
  - COMPLETED SUICIDE [None]
  - DEPRESSION [None]
